FAERS Safety Report 12100888 (Version 2)
Quarter: 2016Q3

REPORT INFORMATION
  Report Type: Spontaneous
  Country: US (occurrence: US)
  Receive Date: 20160222
  Receipt Date: 20160829
  Transmission Date: 20161109
  Serious: Yes (Hospitalization, Other)
  Sender: FDA-Public Use
  Company Number: US-TEVA-636368USA

PATIENT
  Age: 53 Year
  Sex: Female

DRUGS (2)
  1. COPAXONE [Suspect]
     Active Substance: GLATIRAMER ACETATE
     Dosage: UNKNOWN FORM STRENGTH
     Route: 065
     Dates: start: 20130327
  2. COPAXONE [Suspect]
     Active Substance: GLATIRAMER ACETATE
     Dosage: UNKNOWN FORM STRENGTH
     Route: 065
     Dates: start: 201204

REACTIONS (8)
  - Peripheral swelling [Recovered/Resolved]
  - Hypersensitivity [Unknown]
  - Angioedema [Unknown]
  - Erythema [Unknown]
  - Lip swelling [Unknown]
  - Urticaria [Unknown]
  - Tachycardia [Recovered/Resolved]
  - Ear swelling [Unknown]

NARRATIVE: CASE EVENT DATE: 20130328
